FAERS Safety Report 15807832 (Version 1)
Quarter: 2019Q1

REPORT INFORMATION
  Report Type: Spontaneous
  Country: US (occurrence: US)
  Receive Date: 20190110
  Receipt Date: 20190110
  Transmission Date: 20190417
  Serious: No
  Sender: FDA-Public Use
  Company Number: US-SHIRE-US201830302

PATIENT
  Age: 21 Year
  Sex: Male

DRUGS (1)
  1. ELAPRASE [Suspect]
     Active Substance: IDURSULFASE
     Indication: MUCOPOLYSACCHARIDOSIS II
     Dosage: UNK, 1X/WEEK
     Route: 042
     Dates: start: 20100310

REACTIONS (3)
  - Vein disorder [Unknown]
  - Inappropriate schedule of product administration [Unknown]
  - Hiccups [Unknown]

NARRATIVE: CASE EVENT DATE: 20180801
